FAERS Safety Report 19773364 (Version 1)
Quarter: 2021Q3

REPORT INFORMATION
  Report Type: Spontaneous
  Country: US (occurrence: US)
  Receive Date: 20210901
  Receipt Date: 20210901
  Transmission Date: 20211014
  Serious: No
  Sender: FDA-Public Use
  Company Number: US-ORGANON-O2108USA001925

PATIENT
  Age: 63 Year
  Sex: Female

DRUGS (8)
  1. ADVIL [Suspect]
     Active Substance: IBUPROFEN
     Dosage: UNK
     Dates: start: 20210814
  2. PANTOPRAZOLE [Concomitant]
     Active Substance: PANTOPRAZOLE
     Dosage: UNK
  3. FOSAMAX [Suspect]
     Active Substance: ALENDRONATE SODIUM
     Dosage: ONCE PER WEEK?TAKES ON SATURDAY
     Route: 048
     Dates: start: 20210814
  4. ADVAIR HFA [Concomitant]
     Active Substance: FLUTICASONE PROPIONATE\SALMETEROL XINAFOATE
     Indication: CHRONIC OBSTRUCTIVE PULMONARY DISEASE
     Dosage: UNK
  5. FOSAMAX [Suspect]
     Active Substance: ALENDRONATE SODIUM
     Indication: OSTEOPOROSIS
     Dosage: ONCE PER WEEK?TAKES ON SATURDAY
     Route: 048
     Dates: start: 20210807
  6. TYLENOL [Concomitant]
     Active Substance: ACETAMINOPHEN
     Dosage: UNK
  7. KRATOM [Concomitant]
     Active Substance: HERBALS\MITRAGYNINE
     Dosage: UNK
  8. FOSAMAX [Suspect]
     Active Substance: ALENDRONATE SODIUM
     Dosage: ONCE PER WEEK?TAKES ON SATURDAY
     Route: 048
     Dates: start: 20210821

REACTIONS (4)
  - Groin pain [Not Recovered/Not Resolved]
  - Abdominal pain upper [Not Recovered/Not Resolved]
  - Arthralgia [Not Recovered/Not Resolved]
  - Labelled drug-drug interaction medication error [Unknown]

NARRATIVE: CASE EVENT DATE: 20210814
